FAERS Safety Report 6646481-4 (Version None)
Quarter: 2010Q1

REPORT INFORMATION
  Report Type: 
  Country: None (occurrence: None)
  Receive Date: 20100323
  Receipt Date: 20100318
  Transmission Date: 20100710
  Serious: Yes (Other)
  Sender: FDA-Public Use
  Company Number: GB-ROCHE-692280

PATIENT

DRUGS (2)
  1. PEGASYS [Suspect]
     Indication: HEPATITIS C
     Route: 065
     Dates: start: 20091101
  2. COPEGUS [Suspect]
     Indication: HEPATITIS C
     Dosage: TWO DIVIDED DOSES
     Route: 065
     Dates: start: 20091101

REACTIONS (3)
  - CHEST PAIN [None]
  - FIBRIN D DIMER INCREASED [None]
  - PALPITATIONS [None]
